FAERS Safety Report 22351097 (Version 4)
Quarter: 2023Q2

REPORT INFORMATION
  Report Type: Report from Study
  Country: CA (occurrence: None)
  Receive Date: 20230522
  Receipt Date: 20230607
  Transmission Date: 20230721
  Serious: Yes (Hospitalization)
  Sender: FDA-Public Use
  Company Number: CA-Eisai Inc (Eisai China)-EC-2023-140483

PATIENT
  Age: 74 Year
  Sex: Male

DRUGS (3)
  1. LENVIMA [Suspect]
     Active Substance: LENVATINIB
     Indication: Hepatocellular carcinoma
     Route: 048
     Dates: start: 20230504, end: 20230511
  2. LENVIMA [Suspect]
     Active Substance: LENVATINIB
     Route: 048
     Dates: start: 202305, end: 20230529
  3. LENVIMA [Suspect]
     Active Substance: LENVATINIB
     Route: 048
     Dates: start: 20230530

REACTIONS (3)
  - Abdominal pain upper [Unknown]
  - Stomatitis [Unknown]
  - Lip pain [Unknown]

NARRATIVE: CASE EVENT DATE: 20230101
